FAERS Safety Report 5296099-3 (Version None)
Quarter: 2007Q2

REPORT INFORMATION
  Report Type: 
  Country: None (occurrence: None)
  Receive Date: 20070413
  Receipt Date: 20070403
  Transmission Date: 20071010
  Serious: Yes (Death, Life-Threatening, Hospitalization, Other)
  Sender: FDA-Public Use
  Company Number: GB-AVENTIS-200711952GDDC

PATIENT
  Age: 55 Year
  Sex: Female
  Weight: 87.7 kg

DRUGS (3)
  1. DOCETAXEL [Suspect]
     Indication: BREAST CANCER
     Dosage: DOSE: 155 MG (CUMULATIVE DOSE = 1080 MG)
     Route: 042
     Dates: start: 20061005, end: 20070118
  2. EPIRUBICIN [Suspect]
     Indication: BREAST CANCER
     Dosage: DOSE: 186 MG (CUMULATIVE DOSE = 558 MG)
     Route: 042
     Dates: start: 20061202, end: 20070118
  3. CLEXANE [Concomitant]
     Dates: start: 20070205

REACTIONS (8)
  - CLOSTRIDIUM DIFFICILE COLITIS [None]
  - DEATH [None]
  - DEEP VEIN THROMBOSIS [None]
  - DISSEMINATED INTRAVASCULAR COAGULATION [None]
  - DYSPHASIA [None]
  - ODYNOPHAGIA [None]
  - RENAL FAILURE ACUTE [None]
  - SEPSIS [None]
